FAERS Safety Report 5158097-X (Version None)
Quarter: 2006Q4

REPORT INFORMATION
  Report Type: 
  Country: None (occurrence: None)
  Receive Date: 20061117
  Receipt Date: 20061109
  Transmission Date: 20070319
  Serious: Yes (Hospitalization)
  Sender: FDA-Public Use
  Company Number: 2006130982

PATIENT
  Age: 51 Year
  Sex: Male
  Weight: 97.6 kg

DRUGS (4)
  1. MEDROL [Suspect]
     Indication: MULTIPLE SCLEROSIS
     Dosage: 500 MG (500 MG, DAILY), ORAL
     Route: 048
  2. AMITRIPTYLINE HCL [Concomitant]
  3. SIMVASTATIN [Concomitant]
  4. LOSEC (OMEPRAZOLE) [Concomitant]

REACTIONS (1)
  - DIVERTICULITIS [None]
